FAERS Safety Report 10427978 (Version 3)
Quarter: 2015Q1

REPORT INFORMATION
  Report Type: Spontaneous
  Country: PR (occurrence: PR)
  Receive Date: 20140903
  Receipt Date: 20150223
  Transmission Date: 20150720
  Serious: Yes (Other)
  Sender: FDA-Public Use
  Company Number: PR-BAYER-2014-129547

PATIENT
  Age: 42 Year
  Sex: Female

DRUGS (2)
  1. MIRENA [Suspect]
     Active Substance: LEVONORGESTREL
     Indication: MENORRHAGIA
     Dosage: 20 MCG/24HR, CONT
     Route: 015
     Dates: start: 20140814, end: 20140814
  2. MIRENA [Suspect]
     Active Substance: LEVONORGESTREL
     Indication: ANAEMIA

REACTIONS (4)
  - Device deployment issue [None]
  - Procedural pain [None]
  - Procedural haemorrhage [None]
  - Device difficult to use [None]

NARRATIVE: CASE EVENT DATE: 20140814
